FAERS Safety Report 16455458 (Version 5)
Quarter: 2019Q4

REPORT INFORMATION
  Report Type: Spontaneous
  Country: PT (occurrence: PT)
  Receive Date: 20190620
  Receipt Date: 20191119
  Transmission Date: 20200122
  Serious: Yes (Death, Other)
  Sender: FDA-Public Use
  Company Number: PT-AUROBINDO-AUR-APL-2019-030095

PATIENT
  Age: 45 Year
  Sex: Female

DRUGS (32)
  1. DOCETAXEL. [Suspect]
     Active Substance: DOCETAXEL
     Indication: HORMONE THERAPY
  2. LETROZOLE. [Suspect]
     Active Substance: LETROZOLE
     Indication: HUMAN EPIDERMAL GROWTH FACTOR RECEPTOR NEGATIVE
     Dosage: UNK
     Route: 065
  3. PALBOCICLIB [Suspect]
     Active Substance: PALBOCICLIB
     Indication: BREAST CANCER METASTATIC
  4. PACLITAXEL. [Suspect]
     Active Substance: PACLITAXEL
     Indication: INVASIVE DUCTAL BREAST CARCINOMA
  5. CARBOPLATIN. [Suspect]
     Active Substance: CARBOPLATIN
     Indication: HORMONE THERAPY
  6. PALBOCICLIB [Suspect]
     Active Substance: PALBOCICLIB
     Indication: HORMONE THERAPY
  7. EXEMESTANE. [Suspect]
     Active Substance: EXEMESTANE
     Indication: INVASIVE DUCTAL BREAST CARCINOMA
  8. EVEROLIMUS. [Suspect]
     Active Substance: EVEROLIMUS
     Indication: METASTASES TO LIVER
     Dosage: UNK
     Route: 065
  9. EVEROLIMUS. [Suspect]
     Active Substance: EVEROLIMUS
     Indication: INVASIVE DUCTAL BREAST CARCINOMA
  10. FULVESTRANT. [Suspect]
     Active Substance: FULVESTRANT
     Indication: CHEMOTHERAPY
     Dosage: UNK
     Route: 030
  11. DOCETAXEL. [Suspect]
     Active Substance: DOCETAXEL
     Indication: INVASIVE DUCTAL BREAST CARCINOMA
  12. EXEMESTANE. [Suspect]
     Active Substance: EXEMESTANE
     Indication: METASTASES TO LIVER
     Dosage: UNK
     Route: 065
  13. LETROZOLE. [Suspect]
     Active Substance: LETROZOLE
     Indication: HORMONE THERAPY
  14. PACLITAXEL. [Suspect]
     Active Substance: PACLITAXEL
     Indication: HORMONE THERAPY
     Dosage: UNK
     Route: 065
  15. CARBOPLATIN. [Suspect]
     Active Substance: CARBOPLATIN
     Indication: CHEMOTHERAPY
     Dosage: UNK
     Route: 065
  16. CARBOPLATIN. [Suspect]
     Active Substance: CARBOPLATIN
     Indication: HUMAN EPIDERMAL GROWTH FACTOR RECEPTOR NEGATIVE
  17. EXEMESTANE. [Suspect]
     Active Substance: EXEMESTANE
     Indication: HORMONE THERAPY
  18. CARBOPLATIN. [Suspect]
     Active Substance: CARBOPLATIN
     Indication: INVASIVE DUCTAL BREAST CARCINOMA
  19. PALBOCICLIB [Suspect]
     Active Substance: PALBOCICLIB
     Indication: CHEMOTHERAPY
     Dosage: UNK
     Route: 065
  20. PALBOCICLIB [Suspect]
     Active Substance: PALBOCICLIB
     Indication: INVASIVE DUCTAL BREAST CARCINOMA
     Dosage: 100 MILLIGRAM, DAILY FOR 21 DAYS
     Route: 048
  21. PALBOCICLIB [Suspect]
     Active Substance: PALBOCICLIB
     Indication: HUMAN EPIDERMAL GROWTH FACTOR RECEPTOR NEGATIVE
  22. DOCETAXEL. [Suspect]
     Active Substance: DOCETAXEL
     Indication: HUMAN EPIDERMAL GROWTH FACTOR RECEPTOR NEGATIVE
  23. LETROZOLE. [Suspect]
     Active Substance: LETROZOLE
     Indication: INVASIVE DUCTAL BREAST CARCINOMA
  24. FULVESTRANT. [Suspect]
     Active Substance: FULVESTRANT
     Indication: HUMAN EPIDERMAL GROWTH FACTOR RECEPTOR NEGATIVE
  25. EVEROLIMUS. [Suspect]
     Active Substance: EVEROLIMUS
     Indication: HUMAN EPIDERMAL GROWTH FACTOR RECEPTOR NEGATIVE
  26. EVEROLIMUS. [Suspect]
     Active Substance: EVEROLIMUS
     Indication: HORMONE THERAPY
  27. DOCETAXEL. [Suspect]
     Active Substance: DOCETAXEL
     Indication: CHEMOTHERAPY
     Dosage: UNK
     Route: 065
  28. EXEMESTANE. [Suspect]
     Active Substance: EXEMESTANE
     Indication: HUMAN EPIDERMAL GROWTH FACTOR RECEPTOR NEGATIVE
  29. PACLITAXEL. [Suspect]
     Active Substance: PACLITAXEL
     Indication: HUMAN EPIDERMAL GROWTH FACTOR RECEPTOR NEGATIVE
  30. FULVESTRANT. [Suspect]
     Active Substance: FULVESTRANT
     Indication: HORMONE THERAPY
  31. FULVESTRANT. [Suspect]
     Active Substance: FULVESTRANT
     Indication: INVASIVE DUCTAL BREAST CARCINOMA
  32. FULVESTRANT. [Suspect]
     Active Substance: FULVESTRANT
     Indication: BREAST CANCER METASTATIC

REACTIONS (13)
  - Drug intolerance [Unknown]
  - Sepsis [Recovering/Resolving]
  - Cancer pain [Unknown]
  - Malignant neoplasm progression [Unknown]
  - Metastasis [Unknown]
  - Therapeutic response decreased [Unknown]
  - Thrombocytopenia [Recovering/Resolving]
  - Metastases to liver [Unknown]
  - Off label use [Unknown]
  - Invasive ductal breast carcinoma [Unknown]
  - Neutropenia [Unknown]
  - Hepatic failure [Fatal]
  - Haematotoxicity [Recovered/Resolved]

NARRATIVE: CASE EVENT DATE: 201612
